FAERS Safety Report 8120111-7 (Version None)
Quarter: 2012Q1

REPORT INFORMATION
  Report Type: 
  Country: None (occurrence: None)
  Receive Date: 20120207
  Receipt Date: 20120125
  Transmission Date: 20120608
  Serious: Yes (Hospitalization)
  Sender: FDA-Public Use
  Company Number: IL-ELI_LILLY_AND_COMPANY-IL201112007078

PATIENT
  Sex: Female

DRUGS (1)
  1. FORTEO [Suspect]
     Indication: HYPOCALCAEMIA
     Dosage: UNK UNK, UNKNOWN
     Route: 065
     Dates: start: 20110801, end: 20111122

REACTIONS (6)
  - TREATMENT NONCOMPLIANCE [None]
  - HYPOCALCAEMIA [None]
  - INCREASED UPPER AIRWAY SECRETION [None]
  - DYSPNOEA [None]
  - INTENTIONAL DRUG MISUSE [None]
  - OFF LABEL USE [None]
